FAERS Safety Report 19937042 (Version 5)
Quarter: 2021Q4

REPORT INFORMATION
  Report Type: Report from Study
  Country: US (occurrence: US)
  Receive Date: 20211009
  Receipt Date: 20211018
  Transmission Date: 20220303
  Serious: Yes (Death, Hospitalization)
  Sender: FDA-Public Use
  Company Number: US-ROCHE-2925856

PATIENT
  Age: 82 Year
  Sex: Female
  Weight: 81.6 kg

DRUGS (16)
  1. ATEZOLIZUMAB [Suspect]
     Active Substance: ATEZOLIZUMAB
     Indication: Transitional cell carcinoma
     Dosage: START DATE OF MOST RECENT DOSE OF STUDY DRUG (ATEZOLIZUMAB 1200 MG) PRIOR TO AE:15/SEP/2021
     Route: 041
     Dates: start: 20210203
  2. SACITUZUMAB GOVITECAN [Suspect]
     Active Substance: SACITUZUMAB GOVITECAN
     Indication: Transitional cell carcinoma
     Dosage: STUDY DRUG FREQUENCY OTHER: (ON DAY 1 AND 8 OF EACH 21-DAY CYCLE)?START DATE OF MOST RECENT DOSE OF
     Route: 042
     Dates: start: 20210915
  3. TIRAGOLUMAB [Suspect]
     Active Substance: TIRAGOLUMAB
     Indication: Transitional cell carcinoma
     Dosage: START DATE OF MOST RECENT DOSE OF STUDY DRUG (TIRAGOLUMAB 600 MG) PRIOR TO AE:04-SEP-2021
     Route: 042
     Dates: start: 20210203
  4. HYDROXYZINE HYDROCHLORIDE [Concomitant]
     Active Substance: HYDROXYZINE HYDROCHLORIDE
     Indication: Rash maculo-papular
     Route: 048
     Dates: start: 20210407, end: 20211006
  5. ARISTOCORT [Concomitant]
     Active Substance: TRIAMCINOLONE DIACETATE
     Indication: Pruritus
     Route: 061
     Dates: start: 20210414, end: 20210922
  6. CYMBALTA [Concomitant]
     Active Substance: DULOXETINE HYDROCHLORIDE
     Indication: Neuropathy peripheral
     Dates: start: 20210505, end: 20211006
  7. ONDANSETRON [Concomitant]
     Active Substance: ONDANSETRON
     Indication: Vomiting
     Dates: start: 20210615, end: 20211006
  8. PERCOCET [Concomitant]
     Active Substance: ACETAMINOPHEN\OXYCODONE HYDROCHLORIDE
     Indication: Arthralgia
     Dates: start: 20210625, end: 20211006
  9. NYSTATIN [Concomitant]
     Active Substance: NYSTATIN
     Indication: Candida infection
     Route: 048
     Dates: start: 20210901, end: 20211006
  10. CLOTRIMAZOLE [Concomitant]
     Active Substance: CLOTRIMAZOLE
     Indication: Candida infection
     Route: 048
     Dates: start: 20210901, end: 20211006
  11. DEXAMETHASONE [Concomitant]
     Active Substance: DEXAMETHASONE
     Indication: Stomatitis
     Route: 048
     Dates: start: 20210915, end: 20211006
  12. PROCHLORPERAZINE [Concomitant]
     Active Substance: PROCHLORPERAZINE
     Indication: Nausea
     Route: 048
     Dates: start: 20210917, end: 20211006
  13. PROCHLORPERAZINE [Concomitant]
     Active Substance: PROCHLORPERAZINE
     Indication: Vomiting
  14. ATIVAN [Concomitant]
     Active Substance: LORAZEPAM
     Indication: Nausea
     Route: 048
     Dates: start: 20210917, end: 20211006
  15. MIRABEGRON [Concomitant]
     Active Substance: MIRABEGRON
     Indication: Bladder spasm
     Route: 048
     Dates: start: 20210922, end: 20211006
  16. CLOBETASOL [Concomitant]
     Active Substance: CLOBETASOL
     Indication: Rash maculo-papular
     Route: 061
     Dates: start: 20210312, end: 20211006

REACTIONS (1)
  - Distributive shock [Fatal]

NARRATIVE: CASE EVENT DATE: 20210927
